FAERS Safety Report 9890933 (Version 2)
Quarter: 2014Q1

REPORT INFORMATION
  Report Type: Spontaneous
  Country: DE (occurrence: None)
  Receive Date: 20140210
  Receipt Date: 20140310
  Transmission Date: 20141002
  Serious: Yes (Death)
  Sender: FDA-Public Use
  Company Number: 1402-0286

PATIENT
  Age: 83 Year
  Sex: Male

DRUGS (9)
  1. EYLEA [Suspect]
     Indication: AGE-RELATED MACULAR DEGENERATION
     Route: 031
     Dates: start: 201401, end: 201401
  2. BAYASPIRIN (ACETYLSALICYLIC ACID) (ACETYLSALICYLIC ACID) [Concomitant]
  3. CONIEL (BENIDIPINE HYDROCHLORIDE) (BENIDIPINE HYDROCHLORIDE) [Concomitant]
  4. ECARD [Concomitant]
  5. SPIRIVA [Concomitant]
  6. HOKUNALIN TAPE [Concomitant]
  7. URSO [Concomitant]
  8. SOLON (PREDNISOLONE) [Concomitant]
  9. GASTER (FAMOTIDINE) [Concomitant]

REACTIONS (2)
  - Death [None]
  - Mesenteric arterial occlusion [None]
